FAERS Safety Report 15233304 (Version 9)
Quarter: 2020Q2

REPORT INFORMATION
  Report Type: Spontaneous
  Country: US (occurrence: US)
  Receive Date: 20180802
  Receipt Date: 20200428
  Transmission Date: 20200713
  Serious: No
  Sender: FDA-Public Use
  Company Number: US-PFIZER INC-2018311959

PATIENT
  Age: 60 Year
  Sex: Female

DRUGS (4)
  1. IBRANCE [Suspect]
     Active Substance: PALBOCICLIB
     Dosage: 125 MG, CYCLIC (DAILY, FOR 21 DAYS ON, 7 DAYS OFF)
     Route: 048
     Dates: start: 20190730
  2. IBRANCE [Suspect]
     Active Substance: PALBOCICLIB
     Indication: BREAST CANCER FEMALE
     Dosage: 125 MG, CYCLIC (DAILY, FOR 21 DAYS ON, 7 DAYS OFF)
     Route: 048
     Dates: start: 20180718, end: 201807
  3. IBRANCE [Suspect]
     Active Substance: PALBOCICLIB
     Dosage: 125 MG, CYCLIC (DAILY, FOR 21 DAYS ON, 7 DAYS OFF)
     Route: 048
     Dates: start: 20180730
  4. IBRANCE [Suspect]
     Active Substance: PALBOCICLIB
     Dosage: 125 MG, DAILY
     Dates: start: 20180730

REACTIONS (12)
  - Constipation [Unknown]
  - Back pain [Unknown]
  - Pruritus genital [Unknown]
  - Fatigue [Not Recovered/Not Resolved]
  - Headache [Unknown]
  - Vulvovaginal pruritus [Recovering/Resolving]
  - Hot flush [Unknown]
  - Pruritus [Unknown]
  - Anal pruritus [Recovering/Resolving]
  - Somnolence [Unknown]
  - Peripheral swelling [Unknown]
  - Dysgeusia [Not Recovered/Not Resolved]

NARRATIVE: CASE EVENT DATE: 20180731
